FAERS Safety Report 25794802 (Version 1)
Quarter: 2025Q3

REPORT INFORMATION
  Report Type: Report from Study
  Country: US (occurrence: US)
  Receive Date: 20250912
  Receipt Date: 20250912
  Transmission Date: 20251020
  Serious: Yes (Other)
  Sender: ABBVIE
  Company Number: US-ABBVIE-6452780

PATIENT
  Age: 62 Year
  Sex: Male

DRUGS (3)
  1. RINVOQ [Suspect]
     Active Substance: UPADACITINIB
     Indication: Colitis ulcerative
     Dosage: STRENGTH- 45MG, FIRST AND LAST ADMIN DATE 2025
     Route: 048
  2. RINVOQ [Suspect]
     Active Substance: UPADACITINIB
     Indication: Colitis ulcerative
     Dosage: STRENGTH- 45MG, LAST ADMIN DATE 2025
     Route: 048
     Dates: start: 202507
  3. RINVOQ [Suspect]
     Active Substance: UPADACITINIB
     Indication: Colitis ulcerative
     Dosage: STRENGTH- 45MG, FIRST ADMIN DATE 2025
     Route: 048

REACTIONS (2)
  - Platelet transfusion [Unknown]
  - Illness [Unknown]

NARRATIVE: CASE EVENT DATE: 20250101
